FAERS Safety Report 19652193 (Version 1)
Quarter: 2021Q3

REPORT INFORMATION
  Report Type: Other
  Country: DE (occurrence: DE)
  Receive Date: 20210803
  Receipt Date: 20210803
  Transmission Date: 20211014
  Serious: Yes (Other)
  Sender: FDA-Public Use
  Company Number: DE-LUPIN PHARMACEUTICALS INC.-2021-13347

PATIENT
  Age: 33 Year
  Sex: Female

DRUGS (11)
  1. NOVAMINSULFON LICHTENSTEIN [Concomitant]
     Active Substance: METAMIZOLE SODIUM
     Indication: PRODUCT USED FOR UNKNOWN INDICATION
     Dosage: UNK (MEDICATION ON DEMAND ? NOT TAKEN BEFORE AND DURING THE SYMPTOMS)
     Route: 065
     Dates: start: 202001
  2. MIRTALICH [Concomitant]
     Active Substance: MIRTAZAPINE
     Indication: PRODUCT USED FOR UNKNOWN INDICATION
     Dosage: 15 MILLIGRAM, QD (NIGHTLY)
     Route: 065
     Dates: start: 201903
  3. MAGNESIUM CITRATE;MAGNESIUM GLUCONATE [Concomitant]
     Indication: PRODUCT USED FOR UNKNOWN INDICATION
     Dosage: UNK
     Route: 065
     Dates: start: 201903
  4. DOCITON [Concomitant]
     Active Substance: PROPRANOLOL HYDROCHLORIDE
     Indication: PRODUCT USED FOR UNKNOWN INDICATION
     Dosage: 20 MILLIGRAM, QD (NIGHTLY)
     Route: 065
     Dates: start: 201903
  5. QUETIAPINE. [Suspect]
     Active Substance: QUETIAPINE
     Indication: POST-TRAUMATIC STRESS DISORDER
  6. TAVOR [Concomitant]
     Indication: PRODUCT USED FOR UNKNOWN INDICATION
     Dosage: UNK (MEDICATION ON DEMAND ? NOT TAKEN BEFORE AND DURING THE SYMPTOMS)
     Route: 065
     Dates: start: 201908
  7. INDERAL [Concomitant]
     Active Substance: PROPRANOLOL HYDROCHLORIDE
     Indication: PRODUCT USED FOR UNKNOWN INDICATION
     Dosage: UNK
     Route: 065
     Dates: start: 201903
  8. QUETIAPIN?HORMOSAN 100 MG FILMTABLETTEN [Suspect]
     Active Substance: QUETIAPINE FUMARATE
     Indication: POST-TRAUMATIC STRESS DISORDER
     Dosage: UNK
     Route: 065
     Dates: start: 20210210
  9. QUETIAPIN?HORMOSAN 100 MG FILMTABLETTEN [Suspect]
     Active Substance: QUETIAPINE FUMARATE
     Indication: SLEEP DISORDER
  10. QUETIAPINE. [Suspect]
     Active Substance: QUETIAPINE
     Indication: SLEEP DISORDER
     Dosage: UNK
     Route: 065
     Dates: start: 20210210
  11. AMINEURIN [Concomitant]
     Active Substance: AMITRIPTYLINE HYDROCHLORIDE
     Indication: PRODUCT USED FOR UNKNOWN INDICATION
     Dosage: 20 MILLIGRAM (NIGHTLY)
     Route: 065
     Dates: start: 201903

REACTIONS (15)
  - Dyspnoea [Recovered/Resolved]
  - Heart rate increased [Recovered/Resolved]
  - Angina pectoris [Recovered/Resolved]
  - Palpitations [Recovered/Resolved]
  - Vascular pain [Recovered/Resolved]
  - Ocular discomfort [Recovered/Resolved]
  - Feeling hot [Recovered/Resolved]
  - Pain in extremity [Not Recovered/Not Resolved]
  - Cough [Recovered/Resolved]
  - Dissociation [Recovered/Resolved]
  - Visual impairment [Recovered/Resolved]
  - Chest pain [Recovered/Resolved]
  - Feeling cold [Recovered/Resolved]
  - Painful respiration [Recovered/Resolved]
  - Hypertension [Recovered/Resolved]

NARRATIVE: CASE EVENT DATE: 202107
